FAERS Safety Report 9696240 (Version 1)
Quarter: 2013Q4

REPORT INFORMATION
  Report Type: Spontaneous
  Country: US (occurrence: US)
  Receive Date: 20131119
  Receipt Date: 20131119
  Transmission Date: 20140711
  Serious: Yes (Other)
  Sender: FDA-Public Use
  Company Number: US-ASTRAZENECA-2013SE82912

PATIENT
  Sex: Male

DRUGS (4)
  1. SEROQUEL [Suspect]
     Route: 048
  2. NEURONTIN [Suspect]
     Route: 065
  3. LOPID [Suspect]
     Route: 065
  4. GLUCOTROL [Suspect]
     Route: 065

REACTIONS (2)
  - Bipolar disorder [Unknown]
  - Mental disorder [Unknown]
